FAERS Safety Report 11182281 (Version 3)
Quarter: 2016Q3

REPORT INFORMATION
  Report Type: Spontaneous
  Country: US (occurrence: US)
  Receive Date: 20150611
  Receipt Date: 20160915
  Transmission Date: 20161109
  Serious: No
  Sender: FDA-Public Use
  Company Number: US-ASTELLAS-2015US009225

PATIENT
  Age: 81 Year
  Sex: Male

DRUGS (5)
  1. XTANDI [Suspect]
     Active Substance: ENZALUTAMIDE
     Dosage: 80 MG, ONCE DAILY (ONE DAY)
     Route: 048
  2. XTANDI [Suspect]
     Active Substance: ENZALUTAMIDE
     Route: 048
  3. XTANDI [Suspect]
     Active Substance: ENZALUTAMIDE
     Route: 048
     Dates: start: 20160510
  4. XTANDI [Suspect]
     Active Substance: ENZALUTAMIDE
     Indication: PROSTATE CANCER
     Route: 048
     Dates: start: 20150223
  5. LUPRON [Suspect]
     Active Substance: LEUPROLIDE ACETATE
     Indication: PRODUCT USED FOR UNKNOWN INDICATION
     Dosage: UNK, UNKNOWN FREQ.
     Route: 065

REACTIONS (14)
  - Blood pressure fluctuation [Unknown]
  - Gynaecomastia [Not Recovered/Not Resolved]
  - Pain in extremity [Recovered/Resolved]
  - Lacrimation increased [Unknown]
  - Diarrhoea [Recovering/Resolving]
  - Fatigue [Recovering/Resolving]
  - Nasal congestion [Not Recovered/Not Resolved]
  - Prostatic specific antigen increased [Recovering/Resolving]
  - Vision blurred [Recovering/Resolving]
  - Nail growth abnormal [Recovering/Resolving]
  - Back pain [Unknown]
  - Blood pressure increased [Unknown]
  - Fatigue [Unknown]
  - Productive cough [Not Recovered/Not Resolved]

NARRATIVE: CASE EVENT DATE: 20150317
